FAERS Safety Report 7525738-9 (Version None)
Quarter: 2011Q2

REPORT INFORMATION
  Report Type: 
  Country: None (occurrence: None)
  Receive Date: 20110606
  Receipt Date: 20110523
  Transmission Date: 20111010
  Serious: Yes (Hospitalization)
  Sender: FDA-Public Use
  Company Number: PHHY2011DE31907

PATIENT
  Sex: Male
  Weight: 70 kg

DRUGS (3)
  1. ZOMETA [Suspect]
     Indication: METASTASES TO BONE
     Dosage: 4 MG, PER 5 ML
     Route: 042
     Dates: start: 20100811
  2. OMEPRAZOLE [Concomitant]
     Indication: GASTRIC HAEMORRHAGE
     Dosage: UNK
     Dates: start: 20090101
  3. MARCUMAR [Concomitant]
     Dosage: UNK
     Dates: start: 20050101

REACTIONS (9)
  - VISION BLURRED [None]
  - EYE IRRITATION [None]
  - OCULAR HYPERAEMIA [None]
  - EYE PRURITUS [None]
  - EYE PAIN [None]
  - PAPILLITIS [None]
  - SCLERITIS [None]
  - EYELID OEDEMA [None]
  - VISUAL IMPAIRMENT [None]
